FAERS Safety Report 8308450-8 (Version None)
Quarter: 2012Q2

REPORT INFORMATION
  Report Type: 
  Country: None (occurrence: None)
  Receive Date: 20120424
  Receipt Date: 20120419
  Transmission Date: 20120825
  Serious: Yes (Death, Hospitalization)
  Sender: FDA-Public Use
  Company Number: DE-ROCHE-1061457

PATIENT
  Sex: Female

DRUGS (1)
  1. MABTHERA [Suspect]
     Indication: RHEUMATOID ARTHRITIS
     Dates: start: 20070712, end: 20081208

REACTIONS (3)
  - CARDIAC FAILURE ACUTE [None]
  - MULTI-ORGAN FAILURE [None]
  - PULMONARY SEPSIS [None]
